FAERS Safety Report 21595436 (Version 1)
Quarter: 2022Q4

REPORT INFORMATION
  Report Type: Spontaneous
  Country: IT (occurrence: IT)
  Receive Date: 20221115
  Receipt Date: 20221115
  Transmission Date: 20230113
  Serious: Yes (Death, Hospitalization)
  Sender: FDA-Public Use
  Company Number: IT-STRIDES ARCOLAB LIMITED-2022SP015189

PATIENT
  Age: 40 Year
  Sex: Female

DRUGS (18)
  1. PREDNISOLONE [Suspect]
     Active Substance: PREDNISOLONE
     Indication: Desmoid tumour
     Dosage: 100 MILLIGRAM, PART OF R-CHOP REGIMEN
     Route: 065
  2. PREDNISOLONE [Suspect]
     Active Substance: PREDNISOLONE
     Indication: Follicular lymphoma
  3. DEXAMETHASONE [Suspect]
     Active Substance: DEXAMETHASONE
     Indication: Desmoid tumour
     Dosage: 40 MILLIGRAM, PART OF RDHAOX REGIMEN
     Route: 042
  4. DEXAMETHASONE [Suspect]
     Active Substance: DEXAMETHASONE
     Indication: Follicular lymphoma
     Dosage: 40 MILLIGRAM, PART OF RDHAOX REGIMEN
     Route: 048
  5. DOXORUBICIN [Suspect]
     Active Substance: DOXORUBICIN
     Indication: Desmoid tumour
     Dosage: 50 MILLIGRAM/SQ. METER, (PART OF R-CHOP REGIMEN)
     Route: 042
  6. DOXORUBICIN [Suspect]
     Active Substance: DOXORUBICIN
     Indication: Follicular lymphoma
     Dosage: 20 MILLIGRAM/SQ. METER, (MONOTHERAPY)
     Route: 065
  7. METHOTREXATE [Suspect]
     Active Substance: METHOTREXATE
     Indication: Desmoid tumour
     Dosage: UNK
     Route: 065
  8. RITUXIMAB [Suspect]
     Active Substance: RITUXIMAB
     Indication: Desmoid tumour
     Dosage: 375 MILLIGRAM/SQ. METER, (PART OF R-CHOP REGIMEN)
     Route: 042
  9. RITUXIMAB [Suspect]
     Active Substance: RITUXIMAB
     Indication: Follicular lymphoma
     Dosage: 375 MILLIGRAM/SQ. METER, (PART OF RDHAOX REGIMEN)
     Route: 042
  10. VINCRISTINE [Suspect]
     Active Substance: VINCRISTINE
     Indication: Desmoid tumour
     Dosage: 1.4 MILLIGRAM/SQ. METER, (PART OF R-CHOP REGIMEN)
     Route: 042
  11. VINCRISTINE [Suspect]
     Active Substance: VINCRISTINE
     Indication: Follicular lymphoma
  12. CYCLOPHOSPHAMIDE [Suspect]
     Active Substance: CYCLOPHOSPHAMIDE
     Indication: Desmoid tumour
     Dosage: 750 MILLIGRAM/SQ. METER, (PART OF R-CHOP REGIMEN)
     Route: 042
  13. CYCLOPHOSPHAMIDE [Suspect]
     Active Substance: CYCLOPHOSPHAMIDE
     Indication: Follicular lymphoma
  14. OXALIPLATIN [Suspect]
     Active Substance: OXALIPLATIN
     Indication: Desmoid tumour
     Dosage: 65 MILLIGRAM/SQ. METER ((PART OF RDHAOX REGIMEN)
     Route: 042
  15. OXALIPLATIN [Suspect]
     Active Substance: OXALIPLATIN
     Indication: Follicular lymphoma
  16. CYTARABINE [Suspect]
     Active Substance: CYTARABINE
     Indication: Desmoid tumour
     Dosage: 1000 MILLIGRAM/SQ. METER (PART OF RDHAOX REGIMEN)
     Route: 042
  17. CYTARABINE [Suspect]
     Active Substance: CYTARABINE
     Indication: Follicular lymphoma
  18. VINORELBINE [Concomitant]
     Active Substance: VINORELBINE TARTRATE
     Indication: Desmoid tumour
     Dosage: UNK
     Route: 065

REACTIONS (3)
  - Drug ineffective [Fatal]
  - Therapy partial responder [Unknown]
  - Off label use [Unknown]
